FAERS Safety Report 9308319 (Version 1)
Quarter: 2013Q2

REPORT INFORMATION
  Report Type: Spontaneous
  Country: CA (occurrence: CA)
  Receive Date: 20130524
  Receipt Date: 20130524
  Transmission Date: 20140414
  Serious: Yes (Other)
  Sender: FDA-Public Use
  Company Number: CA-GLAXOSMITHKLINE-A1010860A

PATIENT
  Sex: Female
  Weight: 90.9 kg

DRUGS (9)
  1. ADVAIR [Suspect]
     Indication: ASTHMA
     Dosage: 1PUFF TWICE PER DAY
     Route: 055
     Dates: start: 2008
  2. PANTALOC [Concomitant]
     Dosage: 40MG PER DAY
  3. ASA [Concomitant]
     Dosage: 81MG PER DAY
  4. FUROSEMIDE [Concomitant]
     Dosage: 40MG PER DAY
  5. FOLIC ACID [Concomitant]
     Dosage: 5MG PER DAY
  6. PLAVIX [Concomitant]
     Dosage: 75MG PER DAY
  7. LIPITOR [Concomitant]
     Dosage: 20MG PER DAY
  8. CANDESARTAN CILEXETIL [Concomitant]
     Dosage: 8MG PER DAY
  9. VITAMIN B12 [Concomitant]

REACTIONS (6)
  - Oropharyngeal pain [Not Recovered/Not Resolved]
  - Staphylococcal infection [Unknown]
  - Skin ulcer [Unknown]
  - Dyspnoea [Unknown]
  - Chronic obstructive pulmonary disease [Unknown]
  - Drug ineffective [Unknown]
